FAERS Safety Report 5206358-8 (Version None)
Quarter: 2006Q4

REPORT INFORMATION
  Report Type: 
  Country: None (occurrence: None)
  Receive Date: 20061026
  Receipt Date: 20060823
  Transmission Date: 20070319
  Serious: Yes (Other)
  Sender: FDA-Public Use
  Company Number: 2006102689

PATIENT

DRUGS (3)
  1. LYRICA [Suspect]
     Dates: start: 20060101
  2. ATENOLOL [Concomitant]
  3. LASIX [Concomitant]

REACTIONS (3)
  - DYSPNOEA [None]
  - GENERALISED OEDEMA [None]
  - WEIGHT INCREASED [None]
